FAERS Safety Report 9375919 (Version 2)
Quarter: 2013Q3

REPORT INFORMATION
  Report Type: Spontaneous
  Country: US (occurrence: US)
  Receive Date: 20130628
  Receipt Date: 20130808
  Transmission Date: 20140515
  Serious: Yes (Disabling)
  Sender: FDA-Public Use
  Company Number: US-009507513-1306USA013088

PATIENT
  Sex: 0

DRUGS (1)
  1. CLARINEX-D-12 [Suspect]
     Indication: PROPHYLAXIS
     Dosage: UNK
     Route: 048

REACTIONS (3)
  - Hypersensitivity [Not Recovered/Not Resolved]
  - Sinus headache [Not Recovered/Not Resolved]
  - Drug dose omission [Unknown]
